FAERS Safety Report 17125126 (Version 10)
Quarter: 2020Q3

REPORT INFORMATION
  Report Type: Spontaneous
  Country: KR (occurrence: KR)
  Receive Date: 20191206
  Receipt Date: 20200701
  Transmission Date: 20201102
  Serious: Yes (Hospitalization, Other)
  Sender: FDA-Public Use
  Company Number: KR-009507513-1902KOR005008

PATIENT
  Age: 54 Year
  Sex: Male

DRUGS (40)
  1. SINEMET CR [Suspect]
     Active Substance: CARBIDOPA\LEVODOPA
     Dosage: 1 TABLET THREE TIMES A DAY AFTER MEAL
     Route: 048
     Dates: start: 20081211, end: 20090618
  2. SINEMET CR [Suspect]
     Active Substance: CARBIDOPA\LEVODOPA
     Dosage: 1.5 TAB THREE TIMES A DAY AFTER MEAL
     Route: 048
     Dates: start: 20100506, end: 20100902
  3. SINEMET CR [Suspect]
     Active Substance: CARBIDOPA\LEVODOPA
     Dosage: 0.5 TAB TWO TIMES A DAY
     Route: 048
     Dates: start: 20100902, end: 20140415
  4. SINEMET CR [Suspect]
     Active Substance: CARBIDOPA\LEVODOPA
     Dosage: 1 TAB FOUR TIMES A DAY
     Route: 048
     Dates: start: 20140415, end: 20140826
  5. MIRAPEX [Suspect]
     Active Substance: PRAMIPEXOLE DIHYDROCHLORIDE
     Dosage: 1 TAB THREE TIMES A DAY AFTER MEAL
     Route: 048
     Dates: start: 20090113
  6. MADOPAR [Suspect]
     Active Substance: BENSERAZIDE HYDROCHLORIDE\LEVODOPA
     Dosage: 1 DOSAGE FORM, QID
     Route: 048
     Dates: start: 201502
  7. SINEMET CR [Suspect]
     Active Substance: CARBIDOPA\LEVODOPA
     Dosage: 1.5 TAB ONE TIME A DAY AFTER BREAKFAST
     Dates: start: 20100902, end: 20140826
  8. SINEMET CR [Suspect]
     Active Substance: CARBIDOPA\LEVODOPA
     Indication: PARKINSON^S DISEASE
     Dosage: 1 TABLET, TID
     Route: 048
     Dates: start: 20080415, end: 2008
  9. MIRAPEX [Suspect]
     Active Substance: PRAMIPEXOLE DIHYDROCHLORIDE
     Indication: PARKINSON^S DISEASE
     Dosage: 0.125 MILLIGRAM, QD
     Route: 048
     Dates: start: 20090113, end: 20090319
  10. REQUIP [Suspect]
     Active Substance: ROPINIROLE HYDROCHLORIDE
     Indication: PARKINSON^S DISEASE
     Dosage: 4 MILLIGRAM, QD
     Route: 048
     Dates: start: 20100107
  11. LEVODOPA [Suspect]
     Active Substance: LEVODOPA
     Dosage: 1 TAB, 5 TIMES PER DAY
     Route: 048
     Dates: start: 20120619
  12. LEVODOPA [Suspect]
     Active Substance: LEVODOPA
     Dosage: 1 TAB ONE TIME A DAY AS NEEDED
     Route: 048
     Dates: start: 20130115
  13. SINEMET CR [Suspect]
     Active Substance: CARBIDOPA\LEVODOPA
     Dosage: 1.5 TAB THREE TIMES DAY AFTER MEAL
     Route: 048
     Dates: start: 20090618, end: 20090917
  14. SINEMET CR [Suspect]
     Active Substance: CARBIDOPA\LEVODOPA
     Dosage: 1.5 TAB ONE TIME A DAY AFTER BREAKFAST
     Route: 048
     Dates: start: 20100107, end: 20100506
  15. REQUIP [Suspect]
     Active Substance: ROPINIROLE HYDROCHLORIDE
     Indication: PARKINSON^S DISEASE
     Dosage: 1 TAB ONE TIME A DAY AFTER BREAKFAST
     Route: 048
     Dates: start: 20100107
  16. MOTILIUM M [Suspect]
     Active Substance: DOMPERIDONE MALEATE
     Dosage: 10 MILLIGRAM, QID
     Route: 048
     Dates: start: 20090917, end: 201002
  17. MOTILIUM M [Suspect]
     Active Substance: DOMPERIDONE MALEATE
     Dosage: 10 MILLIGRAM, TID
     Route: 048
     Dates: start: 201002, end: 2010
  18. MADOPAR [Suspect]
     Active Substance: BENSERAZIDE HYDROCHLORIDE\LEVODOPA
     Dosage: 0.5 DOSAGE FORM, TID
     Route: 048
     Dates: start: 201502
  19. SINEMET CR [Suspect]
     Active Substance: CARBIDOPA\LEVODOPA
     Dosage: 1 TAB THREE TIMES A DAY (1.5?1?1?1)
     Dates: start: 20100107, end: 20100506
  20. MIRAPEX [Suspect]
     Active Substance: PRAMIPEXOLE DIHYDROCHLORIDE
     Indication: PARKINSON^S DISEASE
     Dosage: 0.25 MILLIGRAM, TID
     Route: 048
     Dates: start: 20090113, end: 20090319
  21. MIRAPEX [Suspect]
     Active Substance: PRAMIPEXOLE DIHYDROCHLORIDE
     Dosage: 1 TAB THREE TIMES A DAY AFTER MEAL
     Route: 048
     Dates: start: 20090113
  22. LEVODOPA [Suspect]
     Active Substance: LEVODOPA
     Dosage: 1 TAB FOUR TIMES A DAY
     Route: 048
     Dates: start: 20111227
  23. DOMPERIDONE [Suspect]
     Active Substance: DOMPERIDONE
     Dosage: 10 MILLIGRAM, TID
     Route: 048
     Dates: start: 20081204, end: 200907
  24. MADOPAR [Suspect]
     Active Substance: BENSERAZIDE HYDROCHLORIDE\LEVODOPA
     Dosage: 1 DOSAGE FORM, TID
     Route: 048
     Dates: start: 2015
  25. MADOPAR [Suspect]
     Active Substance: BENSERAZIDE HYDROCHLORIDE\LEVODOPA
     Dosage: 1.5 DOSAGE FORM, TID
     Route: 048
     Dates: start: 2016
  26. PK?MERZ [Concomitant]
     Active Substance: AMANTADINE
     Indication: PRODUCT USED FOR UNKNOWN INDICATION
     Dosage: 0.5 TAB TWO TIMES A DAY AFTER BREAKFAST AND DINNER
     Route: 048
     Dates: start: 20100107
  27. SINEMET CR [Suspect]
     Active Substance: CARBIDOPA\LEVODOPA
     Dosage: 1 TAB THREE TIMES  A DAY (12, 3PM, 6PM)
     Route: 048
     Dates: start: 20100902, end: 20140415
  28. LEVODOPA [Suspect]
     Active Substance: LEVODOPA
     Indication: PARKINSON^S DISEASE
     Dosage: 0.5 TAB TWO TIMES A DAY AS NEEDED
     Route: 048
     Dates: start: 20110106, end: 20111227
  29. REQUIP [Suspect]
     Active Substance: ROPINIROLE HYDROCHLORIDE
     Indication: PARKINSON^S DISEASE
     Dosage: 8 MILLIGRAM, QD
     Route: 048
     Dates: start: 20090618
  30. MADOPAR [Suspect]
     Active Substance: BENSERAZIDE HYDROCHLORIDE\LEVODOPA
     Dosage: 1.5 DOSAGE FORM, TID
     Route: 048
     Dates: start: 2016
  31. SINEMET CR [Suspect]
     Active Substance: CARBIDOPA\LEVODOPA
     Dosage: 0.5 TABLET THREE TIMES A DAY FTER MEAL
     Route: 048
     Dates: start: 20081204, end: 20091211
  32. SINEMET CR [Suspect]
     Active Substance: CARBIDOPA\LEVODOPA
     Dosage: 1 TAB FOUR TIMES A DAY (8A, MD, 4P, 8P)
     Route: 048
     Dates: start: 20090917, end: 20100107
  33. SINEMET CR [Suspect]
     Active Substance: CARBIDOPA\LEVODOPA
     Dosage: 1 DOSAGE FORM, 5 TIMES PER DAY
     Route: 048
     Dates: start: 20140826, end: 20141218
  34. SINEMET CR [Suspect]
     Active Substance: CARBIDOPA\LEVODOPA
     Dosage: 1.5 TAB, 5 TIMES PER DAY
     Route: 048
     Dates: start: 20141218, end: 20150130
  35. MIRAPEX [Suspect]
     Active Substance: PRAMIPEXOLE DIHYDROCHLORIDE
     Dosage: 1 TAB THREE TIMES A DAY AFTER MEAL
     Route: 048
     Dates: start: 20090113
  36. LEVODOPA [Suspect]
     Active Substance: LEVODOPA
     Dosage: 1 TAB THREE TIMES A DAY
     Route: 048
     Dates: start: 20110106, end: 20111227
  37. LEVODOPA [Suspect]
     Active Substance: LEVODOPA
     Dosage: 1.5 TAB ONE TIME A DAY AFTER BREAKFAST
     Route: 048
     Dates: start: 20110106
  38. MADOPAR [Suspect]
     Active Substance: BENSERAZIDE HYDROCHLORIDE\LEVODOPA
     Dosage: 1 DOSAGE FORM, QD
     Route: 048
     Dates: start: 20140826
  39. MADOPAR [Suspect]
     Active Substance: BENSERAZIDE HYDROCHLORIDE\LEVODOPA
     Dosage: 0.5 DOSAGE FORM, TID
     Route: 048
     Dates: start: 201502
  40. PK?MERZ [Concomitant]
     Active Substance: AMANTADINE
     Dosage: 1 TABLET TWO TIMES A DAY AFTER BREAKFAST AND DINNER
     Route: 048
     Dates: start: 20100107, end: 20100506

REACTIONS (13)
  - Parkinson^s disease psychosis [Recovering/Resolving]
  - Therapeutic product effect variable [Not Recovered/Not Resolved]
  - Gait disturbance [Unknown]
  - Dopamine dysregulation syndrome [Unknown]
  - Gambling disorder [Recovered/Resolved]
  - Urine flow decreased [Unknown]
  - Hyperphagia [Unknown]
  - Weight fluctuation [Unknown]
  - Overdose [Unknown]
  - Headache [Unknown]
  - Impulse-control disorder [Recovering/Resolving]
  - Dyskinesia [Recovering/Resolving]
  - Pain [Unknown]

NARRATIVE: CASE EVENT DATE: 2010
